FAERS Safety Report 21410149 (Version 1)
Quarter: 2022Q4

REPORT INFORMATION
  Report Type: Spontaneous
  Country: US (occurrence: US)
  Receive Date: 20221005
  Receipt Date: 20221005
  Transmission Date: 20230112
  Serious: No
  Sender: FDA-Public Use
  Company Number: US-ALLERGAN-2222317US

PATIENT
  Sex: Female

DRUGS (3)
  1. UBRELVY [Suspect]
     Active Substance: UBROGEPANT
     Indication: Product used for unknown indication
     Dosage: UNK
  2. BUTALBITAL [Suspect]
     Active Substance: BUTALBITAL
     Indication: Product used for unknown indication
  3. RIZATRIPTAN [Suspect]
     Active Substance: RIZATRIPTAN
     Indication: Product used for unknown indication

REACTIONS (3)
  - Migraine [Unknown]
  - Stress [Unknown]
  - Anxiety [Unknown]
